FAERS Safety Report 26185535 (Version 1)
Quarter: 2025Q4

REPORT INFORMATION
  Report Type: Spontaneous
  Country: US (occurrence: US)
  Receive Date: 20251222
  Receipt Date: 20251222
  Transmission Date: 20260118
  Serious: No
  Sender: CSL BEHRING
  Company Number: US-BEH-2025229369

PATIENT
  Sex: Female

DRUGS (1)
  1. HIZENTRA [Suspect]
     Active Substance: HUMAN IMMUNOGLOBULIN G
     Indication: Immunodeficiency common variable
     Dosage: 6 G, Q1-2 WEEK
     Route: 058
     Dates: start: 202202

REACTIONS (4)
  - Lymphadenopathy [Unknown]
  - Decreased appetite [Unknown]
  - Ulcer [Unknown]
  - Weight decreased [Unknown]
